FAERS Safety Report 6964036-9 (Version None)
Quarter: 2010Q3

REPORT INFORMATION
  Report Type: 
  Country: None (occurrence: None)
  Receive Date: 20100902
  Receipt Date: 20100827
  Transmission Date: 20110219
  Serious: Yes (Other)
  Sender: FDA-Public Use
  Company Number: US-AMGEN-KDL434474

PATIENT

DRUGS (6)
  1. NEULASTA [Suspect]
     Indication: CHEMOTHERAPY
     Route: 058
  2. RITUXIMAB [Suspect]
  3. DOXIL [Suspect]
  4. CYCLOPHOSPHAMIDE [Suspect]
  5. VINCRISTINE [Suspect]
  6. PREDNISONE [Suspect]
     Route: 048

REACTIONS (6)
  - CARDIAC FAILURE CONGESTIVE [None]
  - FEBRILE NEUTROPENIA [None]
  - HYPERGLYCAEMIA [None]
  - NEUTROPENIA [None]
  - PLEURAL EFFUSION [None]
  - THROMBOCYTOPENIA [None]
